FAERS Safety Report 7534298-8 (Version None)
Quarter: 2011Q2

REPORT INFORMATION
  Report Type: 
  Country: None (occurrence: None)
  Receive Date: 20110608
  Receipt Date: 20070124
  Transmission Date: 20111010
  Serious: Yes (Hospitalization)
  Sender: FDA-Public Use
  Company Number: PHEH2006US14823

PATIENT
  Sex: Male
  Weight: 88.435 kg

DRUGS (1)
  1. EXJADE [Suspect]
     Indication: IRON OVERLOAD
     Dosage: 1500 MG, QD
     Route: 048
     Dates: end: 20061101

REACTIONS (3)
  - TRANSFUSION REACTION [None]
  - HIP FRACTURE [None]
  - FALL [None]
